FAERS Safety Report 15324347 (Version 1)
Quarter: 2018Q3

REPORT INFORMATION
  Report Type: Spontaneous
  Country: IT (occurrence: IT)
  Receive Date: 20180828
  Receipt Date: 20180828
  Transmission Date: 20181010
  Serious: Yes (Other)
  Sender: FDA-Public Use
  Company Number: IT-COLGATE PALMOLIVE COMPANY-20180801977

PATIENT

DRUGS (1)
  1. CHLORHEXIDINE UNSPECIFIED [Suspect]
     Active Substance: CHLORHEXIDINE
     Dosage: UNK

REACTIONS (3)
  - Anaphylactic reaction [Unknown]
  - Type I hypersensitivity [Unknown]
  - Occupational exposure to product [Unknown]
